FAERS Safety Report 21703341 (Version 1)
Quarter: 2022Q4

REPORT INFORMATION
  Report Type: Report from Study
  Country: US (occurrence: US)
  Receive Date: 20221209
  Receipt Date: 20221209
  Transmission Date: 20230113
  Serious: Yes (Other)
  Sender: FDA-Public Use
  Company Number: US-ABBVIE-4229520

PATIENT
  Sex: Female

DRUGS (7)
  1. RINVOQ [Suspect]
     Active Substance: UPADACITINIB
     Indication: Rheumatoid arthritis
     Dosage: FORM STRENGTH: 15 MILLIGRAM?FREQUENCY TEXT: TAKE 1 TABLET BY MOUTH EVERY DAY
     Route: 048
  2. ESCITALOPRAM [Concomitant]
     Active Substance: ESCITALOPRAM OXALATE
     Indication: Product used for unknown indication
     Dosage: ESCITALOPRAM TAB 20MG,ESTRADIOL TAB 2MG,FUROSEMIDE TAB 20MG
     Route: 065
  3. ALLOPURINOL [Concomitant]
     Active Substance: ALLOPURINOL
     Indication: Product used for unknown indication
     Dosage: ALLOPURINOL TAB 300MG,ARIPIPRAZOLE TAB 2MG
     Route: 065
  4. LORAZEPAM [Concomitant]
     Active Substance: LORAZEPAM
     Indication: Product used for unknown indication
     Dosage: LORAZEPAM TAB 1MG,MONTELUKAST TAB 10MG,POTASSIUM CH TBC 10MEQ.
  5. ARIPIPRAZOLE [Concomitant]
     Active Substance: ARIPIPRAZOLE
     Indication: Product used for unknown indication
     Dosage: ARIPIPRAZOLE TAB 5MG,ATENOLOL TAB 25MG,
     Route: 065
  6. PREDNISONE [Concomitant]
     Active Substance: PREDNISONE
     Indication: Product used for unknown indication
     Dosage: TAB 5MG,TIZANIDINE H TAB 4 G,TRAZODONE HC TAB 50MG,V
     Route: 065
  7. VALSARTAN-HY TAB [Concomitant]
     Indication: Product used for unknown indication
     Dosage: VALSARTAN-HY TAB 160-12.5,XTAMPZA ER C12 13.5MG,GABAPENTIN CAP 300MG
     Route: 065

REACTIONS (2)
  - Surgery [Unknown]
  - COVID-19 [Unknown]
